FAERS Safety Report 6737787-9 (Version None)
Quarter: 2010Q2

REPORT INFORMATION
  Report Type: 
  Country: None (occurrence: None)
  Receive Date: 20100524
  Receipt Date: 20100520
  Transmission Date: 20101027
  Serious: Yes (Life-Threatening)
  Sender: FDA-Public Use
  Company Number: FR-ASTRAZENECA-2010SE12945

PATIENT
  Age: 24 Year
  Sex: Male

DRUGS (3)
  1. NAROPIN [Suspect]
     Indication: ANAESTHESIA
     Dosage: SINGLE ADMINISTRATION
     Dates: start: 20080301, end: 20080301
  2. MIDAZOLAM HCL [Suspect]
     Indication: ANAESTHETIC PREMEDICATION
     Dates: start: 20080301, end: 20080301
  3. MIDAZOLAM HCL [Suspect]
     Route: 042
     Dates: start: 20080301, end: 20080301

REACTIONS (3)
  - LOGORRHOEA [None]
  - PHOSPHENES [None]
  - SINUS TACHYCARDIA [None]
